FAERS Safety Report 23175213 (Version 2)
Quarter: 2023Q4

REPORT INFORMATION
  Report Type: Report from Study
  Country: US (occurrence: None)
  Receive Date: 20231113
  Receipt Date: 20231201
  Transmission Date: 20240109
  Serious: Yes (Hospitalization, Disabling, Other)
  Sender: FDA-Public Use
  Company Number: 2023A252030

PATIENT
  Age: 60 Year
  Sex: Female

DRUGS (3)
  1. BUDESONIDE\FORMOTEROL [Suspect]
     Active Substance: BUDESONIDE\FORMOTEROL
     Dosage: UNKNOWN UNKNOWN
     Route: 055
  2. SYMBICORT [Suspect]
     Active Substance: BUDESONIDE\FORMOTEROL FUMARATE DIHYDRATE
     Indication: Chronic obstructive pulmonary disease
     Dosage: 160/4.5 UNKNOWN
     Route: 055
     Dates: start: 20100401
  3. BREZTRI [Suspect]
     Active Substance: BUDESONIDE\FORMOTEROL\GLYCOPYRROLATE
     Route: 055
     Dates: start: 20140501, end: 20140501

REACTIONS (15)
  - Cardiac discomfort [Unknown]
  - Dyspnoea [Unknown]
  - Nocturnal dyspnoea [Unknown]
  - Petit mal epilepsy [Unknown]
  - Intracranial pressure increased [Unknown]
  - Brain neoplasm malignant [Unknown]
  - Hallucination [Unknown]
  - Heart rate increased [Unknown]
  - Suicidal ideation [Unknown]
  - Tremor [Unknown]
  - Amnesia [Unknown]
  - Multiple allergies [Unknown]
  - Cough [Unknown]
  - Palpitations [Unknown]
  - Anxiety [Unknown]
